FAERS Safety Report 25174824 (Version 2)
Quarter: 2025Q2

REPORT INFORMATION
  Report Type: Spontaneous
  Country: SE (occurrence: SE)
  Receive Date: 20250408
  Receipt Date: 20250530
  Transmission Date: 20250717
  Serious: Yes (Hospitalization)
  Sender: PFIZER
  Company Number: SE-PFIZER INC-PV202500032929

PATIENT
  Age: 69 Year
  Sex: Female

DRUGS (13)
  1. ELREXFIO [Suspect]
     Active Substance: ELRANATAMAB-BCMM
     Indication: Plasma cell myeloma
     Route: 058
     Dates: start: 20250107, end: 20250107
  2. ELREXFIO [Suspect]
     Active Substance: ELRANATAMAB-BCMM
     Route: 058
     Dates: start: 20250111, end: 20250111
  3. ELREXFIO [Suspect]
     Active Substance: ELRANATAMAB-BCMM
     Route: 058
     Dates: start: 20250114, end: 20250114
  4. ELREXFIO [Suspect]
     Active Substance: ELRANATAMAB-BCMM
     Route: 058
     Dates: start: 20250129, end: 20250129
  5. ELREXFIO [Suspect]
     Active Substance: ELRANATAMAB-BCMM
     Route: 058
     Dates: start: 20250212, end: 20250212
  6. METOCLOPRAMIDE [Concomitant]
     Active Substance: METOCLOPRAMIDE
     Indication: Nausea
     Dosage: 10 MG, 3X/DAY
  7. CHOLECALCIFEROL [Concomitant]
     Active Substance: CHOLECALCIFEROL
     Indication: Vitamin D deficiency
     Dosage: 800 IU, 1X/DAY
  8. FOLIC ACID [Concomitant]
     Active Substance: FOLIC ACID
     Indication: Folate deficiency
     Dosage: 1 MG, 1X/DAY
  9. ATENOLOL [Concomitant]
     Active Substance: ATENOLOL
     Indication: Hypertension
     Dosage: 50 MG, 1X/DAY
  10. AMLODIPINE [Concomitant]
     Active Substance: AMLODIPINE BESYLATE
     Indication: Hypertension
     Dosage: 5 MG, 1X/DAY
  11. BACTRIM [Concomitant]
     Active Substance: SULFAMETHOXAZOLE\TRIMETHOPRIM
     Indication: Antifungal prophylaxis
  12. ACYCLOVIR [Concomitant]
     Active Substance: ACYCLOVIR
     Indication: Prophylaxis
     Dosage: 400 MG, 2X/DAY
  13. PROLIA [Concomitant]
     Active Substance: DENOSUMAB

REACTIONS (6)
  - Abdominal pain [Not Recovered/Not Resolved]
  - Fatigue [Unknown]
  - Decreased appetite [Unknown]
  - Nausea [Unknown]
  - Depression [Unknown]
  - Mental disorder [Unknown]

NARRATIVE: CASE EVENT DATE: 20250110
